FAERS Safety Report 18264432 (Version 2)
Quarter: 2020Q3

REPORT INFORMATION
  Report Type: Spontaneous
  Country: CN (occurrence: CN)
  Receive Date: 20200914
  Receipt Date: 20200916
  Transmission Date: 20201103
  Serious: Yes (Other)
  Sender: FDA-Public Use
  Company Number: CN-BAYER-2020-191437

PATIENT
  Age: 67 Year
  Sex: Male

DRUGS (3)
  1. STIVARGA [Suspect]
     Active Substance: REGORAFENIB
     Indication: COLON CANCER
     Dosage: 160 MG, QD
     Route: 048
     Dates: start: 20190913, end: 20190920
  2. STIVARGA [Interacting]
     Active Substance: REGORAFENIB
     Indication: COLON CANCER
     Dosage: 80 MG, QD
     Route: 048
     Dates: start: 20190925, end: 20191007
  3. NIFEDIPINE. [Interacting]
     Active Substance: NIFEDIPINE
     Indication: BLOOD PRESSURE INCREASED
     Dosage: 20 MG, QD
     Route: 048
     Dates: start: 2016

REACTIONS (6)
  - Slow response to stimuli [Recovered/Resolved]
  - Initial insomnia [Recovered/Resolved]
  - Poor quality sleep [Recovered/Resolved]
  - Drug interaction [None]
  - Asthenia [Recovered/Resolved]
  - Dysphoria [Recovered/Resolved]

NARRATIVE: CASE EVENT DATE: 20190918
